FAERS Safety Report 23666730 (Version 2)
Quarter: 2024Q2

REPORT INFORMATION
  Report Type: Spontaneous
  Country: JP (occurrence: JP)
  Receive Date: 20240325
  Receipt Date: 20240403
  Transmission Date: 20240716
  Serious: Yes (Hospitalization, Other)
  Sender: FDA-Public Use
  Company Number: JP-BRISTOL-MYERS SQUIBB COMPANY-2024-045475

PATIENT

DRUGS (7)
  1. YERVOY [Suspect]
     Active Substance: IPILIMUMAB
     Indication: Non-small cell lung cancer
     Route: 041
     Dates: start: 202012, end: 20220318
  2. YERVOY [Suspect]
     Active Substance: IPILIMUMAB
     Route: 041
     Dates: start: 20220408
  3. OPDIVO [Suspect]
     Active Substance: NIVOLUMAB
     Indication: Non-small cell lung cancer
     Dates: start: 202012, end: 20220318
  4. OPDIVO [Suspect]
     Active Substance: NIVOLUMAB
     Dates: start: 20220408
  5. COVID-19 VACCINE NOS [Suspect]
     Active Substance: COVID-19 VACCINE NOS
     Indication: Product used for unknown indication
     Dates: start: 20220327
  6. BONALON [Concomitant]
     Active Substance: ALENDRONATE SODIUM
     Indication: Product used for unknown indication
     Dates: start: 202108
  7. BONALON [Concomitant]
     Active Substance: ALENDRONATE SODIUM
     Dates: start: 202109

REACTIONS (4)
  - Immune-mediated dermatitis [Unknown]
  - Immune-mediated adrenal insufficiency [Unknown]
  - Cytokine release syndrome [Recovering/Resolving]
  - Meningitis aseptic [Unknown]

NARRATIVE: CASE EVENT DATE: 20210101
